FAERS Safety Report 6633224-3 (Version None)
Quarter: 2010Q1

REPORT INFORMATION
  Report Type: 
  Country: None (occurrence: None)
  Receive Date: 20100312
  Receipt Date: 20100310
  Transmission Date: 20100710
  Serious: Yes (Death)
  Sender: FDA-Public Use
  Company Number: PHHY2010MX14601

PATIENT
  Age: 93 Year
  Sex: Female

DRUGS (1)
  1. CO-DIOVAN [Suspect]
     Indication: HYPERTENSION
     Dosage: 1 TABLET (160/25 MG)
     Route: 048
     Dates: end: 20091201

REACTIONS (1)
  - MYOCARDIAL INFARCTION [None]
